FAERS Safety Report 12809733 (Version 1)
Quarter: 2016Q4

REPORT INFORMATION
  Report Type: Other
  Country: KR (occurrence: KR)
  Receive Date: 20161005
  Receipt Date: 20161005
  Transmission Date: 20170207
  Serious: No
  Sender: FDA-Public Use
  Company Number: KR-LUPIN PHARMACEUTICALS INC.-2016-04235

PATIENT
  Age: 73 Year
  Sex: Male

DRUGS (6)
  1. ETHAMBUTOL [Concomitant]
     Active Substance: ETHAMBUTOL HYDROCHLORIDE
     Indication: OSTEOMYELITIS
  2. CLARITHROMYCIN. [Suspect]
     Active Substance: CLARITHROMYCIN
     Indication: OSTEOMYELITIS
  3. CLARITHROMYCIN. [Suspect]
     Active Substance: CLARITHROMYCIN
     Indication: MYCOBACTERIUM AVIUM COMPLEX INFECTION
     Route: 065
  4. ETHAMBUTOL [Concomitant]
     Active Substance: ETHAMBUTOL HYDROCHLORIDE
     Indication: MYCOBACTERIUM AVIUM COMPLEX INFECTION
     Route: 065
  5. RIFAMPIN. [Concomitant]
     Active Substance: RIFAMPIN
     Indication: OSTEOMYELITIS
  6. RIFAMPIN. [Concomitant]
     Active Substance: RIFAMPIN
     Indication: MYCOBACTERIUM AVIUM COMPLEX INFECTION
     Route: 065

REACTIONS (1)
  - Abdominal discomfort [Unknown]
